FAERS Safety Report 17068868 (Version 1)
Quarter: 2019Q4

REPORT INFORMATION
  Report Type: Spontaneous
  Country: US (occurrence: US)
  Receive Date: 20191124
  Receipt Date: 20191124
  Transmission Date: 20200122
  Serious: No
  Sender: FDA-Public Use
  Company Number: US-TEVA-2019-US-1143707

PATIENT
  Sex: Female

DRUGS (1)
  1. DIAZEPAM TABLET [Suspect]
     Active Substance: DIAZEPAM
     Indication: ANXIETY
     Route: 065

REACTIONS (3)
  - Vision blurred [Unknown]
  - Wrong technique in product usage process [Unknown]
  - Asthenia [Unknown]

NARRATIVE: CASE EVENT DATE: 20190909
